FAERS Safety Report 9527015 (Version 1)
Quarter: 2013Q3

REPORT INFORMATION
  Report Type: Spontaneous
  Country: FR (occurrence: FR)
  Receive Date: 20130916
  Receipt Date: 20130916
  Transmission Date: 20140515
  Serious: Yes (Other)
  Sender: FDA-Public Use
  Company Number: FR-BAXTER-2013BAX035512

PATIENT
  Sex: 0

DRUGS (1)
  1. SUPRANE, LIQUIDE POUR INHALATION PAR VAPEUR [Suspect]
     Indication: GENERAL ANAESTHESIA
     Route: 065

REACTIONS (3)
  - Unwanted awareness during anaesthesia [Unknown]
  - Anaesthetic complication [Unknown]
  - Device issue [Unknown]
